FAERS Safety Report 19327089 (Version 2)
Quarter: 2022Q1

REPORT INFORMATION
  Report Type: Spontaneous
  Country: CZ (occurrence: CZ)
  Receive Date: 20210528
  Receipt Date: 20220228
  Transmission Date: 20220423
  Serious: Yes (Death, Life-Threatening, Hospitalization, Other)
  Sender: FDA-Public Use
  Company Number: CZ-CELGENE-CZE-2015011108

PATIENT
  Age: 50 Year
  Sex: Male
  Weight: 84 kg

DRUGS (47)
  1. NINLARO [Suspect]
     Active Substance: IXAZOMIB CITRATE
     Indication: Plasma cell myeloma
     Dosage: 4 MILLIGRAM
     Route: 048
     Dates: start: 20130618
  2. NINLARO [Suspect]
     Active Substance: IXAZOMIB CITRATE
     Dosage: 4 MILLIGRAM
     Route: 048
     Dates: start: 20141216
  3. DEXAMETHASONE [Suspect]
     Active Substance: DEXAMETHASONE
     Indication: Plasma cell myeloma
     Dosage: 40 MILLIGRAM
     Route: 048
     Dates: start: 20130618
  4. DEXAMETHASONE [Suspect]
     Active Substance: DEXAMETHASONE
     Dosage: 40 MILLIGRAM
     Route: 048
     Dates: start: 20141216
  5. REVLIMID [Suspect]
     Active Substance: LENALIDOMIDE
     Indication: Plasma cell myeloma
     Dosage: 25 MILLIGRAM
     Route: 048
     Dates: start: 20130618
  6. REVLIMID [Suspect]
     Active Substance: LENALIDOMIDE
     Dosage: 25 MILLIGRAM
     Route: 048
     Dates: start: 20141216
  7. CEFUROXIMUM [Concomitant]
     Indication: Urinary tract infection
     Dosage: UNK
     Route: 065
     Dates: start: 20131210, end: 20131214
  8. CEFUROXIMUM [Concomitant]
     Dosage: UNK
     Route: 065
     Dates: start: 20140325, end: 20140403
  9. CEFUROXIMUM [Concomitant]
     Dosage: UNK
     Route: 065
     Dates: start: 20140930, end: 20141005
  10. LACTULOSE [Concomitant]
     Active Substance: LACTULOSE
     Indication: Product used for unknown indication
     Dosage: UNK
     Route: 065
     Dates: start: 20130708, end: 20130916
  11. CHLOROXINE [Concomitant]
     Active Substance: CHLOROXINE
     Indication: Diarrhoea
     Dosage: UNK
     Route: 065
     Dates: start: 20140708, end: 20140711
  12. CHLOROXINE [Concomitant]
     Active Substance: CHLOROXINE
     Dosage: UNK
     Route: 065
     Dates: start: 20140121, end: 20140123
  13. METOCLOPRAMIDE [Concomitant]
     Active Substance: METOCLOPRAMIDE
     Indication: Prophylaxis of nausea and vomiting
     Dosage: UNK
     Route: 065
     Dates: start: 20130701, end: 20131015
  14. SULFAMETHOXAZOLE\TRIMETHOPRIM [Concomitant]
     Active Substance: SULFAMETHOXAZOLE\TRIMETHOPRIM
     Indication: Infection prophylaxis
     Dosage: UNK, QD
     Route: 048
     Dates: start: 20130618
  15. NIMESULIDUM [Concomitant]
     Indication: Back pain
     Dosage: 100 MILLIGRAM
     Route: 065
     Dates: start: 2010
  16. OXYCODONE [Concomitant]
     Active Substance: OXYCODONE
     Indication: Back pain
     Dosage: UNK
     Route: 065
     Dates: start: 20110718, end: 20130901
  17. OXYCODONE [Concomitant]
     Active Substance: OXYCODONE
     Dosage: UNK
     Route: 065
     Dates: start: 20130902, end: 20131015
  18. CALTRATE [Concomitant]
     Active Substance: CALCIUM CARBONATE
     Indication: Prophylaxis
     Dosage: UNK
     Route: 065
     Dates: start: 20101115, end: 20141118
  19. OMEPRAZOLUM [Concomitant]
     Indication: Prophylaxis
     Dosage: 20 MILLIGRAM, QD
     Route: 048
     Dates: start: 20130903
  20. OMEPRAZOLUM [Concomitant]
     Dosage: 40 MILLIGRAM, QD
     Route: 048
     Dates: start: 20150107, end: 20150107
  21. CLODRONATE DISODIUM [Concomitant]
     Active Substance: CLODRONATE DISODIUM
     Indication: Product used for unknown indication
     Dosage: UNK
     Route: 065
     Dates: start: 20101210
  22. CLODRONATE DISODIUM [Concomitant]
     Active Substance: CLODRONATE DISODIUM
     Dosage: 200 MILLIGRAM, QD
     Route: 048
     Dates: start: 20150108
  23. PAMYCON [Concomitant]
     Indication: Urinary tract infection
     Dosage: UNK
     Route: 065
     Dates: start: 20131230, end: 20140106
  24. BROMAZEPAMUM [Concomitant]
     Indication: Prophylaxis
     Dosage: 3 MILLIGRAM
     Route: 048
     Dates: start: 20141024
  25. FENTANYLUM [FENTANYL] [Concomitant]
     Indication: Back pain
     Dosage: UNK
     Route: 065
     Dates: start: 20140212, end: 20140303
  26. FENTANYLUM [FENTANYL] [Concomitant]
     Dosage: UNK
     Route: 065
     Dates: start: 20140304
  27. FENTANYLUM [FENTANYL] [Concomitant]
     Dosage: UNK
     Route: 065
     Dates: start: 20140915
  28. MONTMORILLONITE [Concomitant]
     Active Substance: MONTMORILLONITE
     Indication: Gastroenteritis
     Dosage: UNK
     Route: 065
     Dates: start: 20140708, end: 20140711
  29. DINATRIL CYTRIDINI TRIPHOSPHATIS [Concomitant]
     Indication: Prophylaxis
     Dosage: 1600 MILLIGRAM, QD
     Route: 048
     Dates: start: 20101210
  30. ACICLOVIRUM [Concomitant]
     Indication: Prophylaxis
     Dosage: 400 MILLIGRAM, QD
     Route: 048
     Dates: start: 20130618
  31. ACICLOVIRUM [Concomitant]
     Dosage: 200 MILLIGRAM
     Route: 048
     Dates: start: 20150108
  32. BUPRENORPHIUM [Concomitant]
     Indication: Prophylaxis
     Dosage: UNK
     Route: 065
     Dates: start: 20131016, end: 20140211
  33. NADROPARIN [Concomitant]
     Active Substance: NADROPARIN
     Indication: Prophylaxis
     Dosage: UNK
     Route: 065
     Dates: start: 20130618, end: 20131219
  34. NADROPARIN [Concomitant]
     Active Substance: NADROPARIN
     Dosage: UNK
     Route: 065
     Dates: start: 20131210, end: 20141023
  35. ACETAMINOPHEN [Concomitant]
     Active Substance: ACETAMINOPHEN
     Indication: Back pain
     Dosage: 1000 MILLIGRAM
     Route: 048
     Dates: start: 20131016
  36. KALLI CHLORDIUM [Concomitant]
     Indication: Prophylaxis
     Dosage: UNK
     Route: 065
     Dates: start: 20130805, end: 20130901
  37. KALLI CHLORDIUM [Concomitant]
     Indication: Product used for unknown indication
  38. GRANISETRONUM [Concomitant]
     Indication: Prophylaxis
     Dosage: 2 MILLIGRAM
     Route: 048
     Dates: start: 20130902
  39. FILGRASTIMUM [Concomitant]
     Dosage: UNK
     Route: 058
     Dates: start: 20140916
  40. FILGRASTIMUM [Concomitant]
     Dosage: UNK UNK, 2/WEEK
     Route: 058
     Dates: start: 20150106
  41. AUGMENTIN [Concomitant]
     Active Substance: AMOXICILLIN\CLAVULANATE POTASSIUM
     Indication: Infection
     Dosage: UNK
     Route: 065
     Dates: start: 20131112, end: 20131122
  42. ZOLPIDEMI TARTRAS [Concomitant]
     Indication: Insomnia
     Dosage: 10 MILLIGRAM
     Route: 048
     Dates: start: 20130618
  43. LACTULOSUM [Concomitant]
     Indication: Constipation prophylaxis
     Dosage: UNK
     Route: 065
     Dates: start: 20130708, end: 20130916
  44. GLYCERIN [Concomitant]
     Active Substance: GLYCERIN
     Indication: Constipation prophylaxis
     Dosage: UNK
     Route: 065
     Dates: start: 20130708, end: 20130916
  45. NADROPARIN CALCIUM [Concomitant]
     Active Substance: NADROPARIN CALCIUM
     Dosage: 0.3 MILLILITER
     Route: 058
     Dates: start: 20150107, end: 20150107
  46. NADROPARIN CALCIUM [Concomitant]
     Active Substance: NADROPARIN CALCIUM
     Dosage: 0.6 MILLILITER
     Route: 058
     Dates: start: 20150107, end: 20150107
  47. NADROPARIN CALCIUM [Concomitant]
     Active Substance: NADROPARIN CALCIUM
     Dosage: 0.8 MILLILITER
     Route: 058
     Dates: start: 20150108, end: 20150108

REACTIONS (2)
  - Plasma cell myeloma [Fatal]
  - Pulmonary embolism [Fatal]

NARRATIVE: CASE EVENT DATE: 20150106
